FAERS Safety Report 8571805 (Version 6)
Quarter: 2012Q4

REPORT INFORMATION
  Report Type: 
  Country: US (occurrence: US)
  Receive Date: 20120521
  Receipt Date: 20120928
  Transmission Date: 20130627
  Serious: Yes (Hospitalization, Other)
  Sender: FDA-Public Use
  Company Number: US-ASTRAZENECA-2012SE25833

PATIENT
  Age: 36 Year
  Sex: Male
  Weight: 92.1 kg

DRUGS (30)
  1. SEROQUEL [Suspect]
     Indication: POST-TRAUMATIC STRESS DISORDER
     Route: 048
     Dates: start: 200808
  2. SEROQUEL [Suspect]
     Indication: SLEEP DISORDER
     Route: 048
     Dates: start: 200808
  3. SEROQUEL [Suspect]
     Indication: BIPOLAR I DISORDER
     Route: 048
     Dates: start: 200808
  4. SEROQUEL [Suspect]
     Indication: DEPRESSION
     Route: 048
     Dates: start: 200808
  5. SEROQUEL [Suspect]
     Indication: POST-TRAUMATIC STRESS DISORDER
     Route: 048
     Dates: start: 2009, end: 20111231
  6. SEROQUEL [Suspect]
     Indication: SLEEP DISORDER
     Route: 048
     Dates: start: 2009, end: 20111231
  7. SEROQUEL [Suspect]
     Indication: BIPOLAR I DISORDER
     Route: 048
     Dates: start: 2009, end: 20111231
  8. SEROQUEL [Suspect]
     Indication: DEPRESSION
     Route: 048
     Dates: start: 2009, end: 20111231
  9. SEROQUEL [Suspect]
     Indication: POST-TRAUMATIC STRESS DISORDER
     Route: 048
     Dates: start: 20111231, end: 201204
  10. SEROQUEL [Suspect]
     Indication: SLEEP DISORDER
     Route: 048
     Dates: start: 20111231, end: 201204
  11. SEROQUEL [Suspect]
     Indication: BIPOLAR I DISORDER
     Route: 048
     Dates: start: 20111231, end: 201204
  12. SEROQUEL [Suspect]
     Indication: DEPRESSION
     Route: 048
     Dates: start: 20111231, end: 201204
  13. SEROQUEL [Suspect]
     Indication: POST-TRAUMATIC STRESS DISORDER
     Dosage: GENERIC
     Route: 048
  14. SEROQUEL [Suspect]
     Indication: SLEEP DISORDER
     Dosage: GENERIC
     Route: 048
  15. SEROQUEL [Suspect]
     Indication: BIPOLAR I DISORDER
     Dosage: GENERIC
     Route: 048
  16. SEROQUEL [Suspect]
     Indication: DEPRESSION
     Dosage: GENERIC
     Route: 048
  17. SEROQUEL [Suspect]
     Indication: POST-TRAUMATIC STRESS DISORDER
     Route: 048
  18. SEROQUEL [Suspect]
     Indication: SLEEP DISORDER
     Route: 048
  19. SEROQUEL [Suspect]
     Indication: BIPOLAR I DISORDER
     Route: 048
  20. SEROQUEL [Suspect]
     Indication: DEPRESSION
     Route: 048
  21. MS-CONTIN [Suspect]
     Route: 065
  22. KLONOPIN [Concomitant]
     Dosage: TID
  23. KLONOPIN [Concomitant]
  24. XANAX [Concomitant]
  25. SILENOR [Concomitant]
  26. SAPHRIS [Concomitant]
  27. CYMBALTA [Concomitant]
  28. ZYPREXA [Concomitant]
  29. XANOR [Concomitant]
  30. AMITRIPTYLINE [Concomitant]

REACTIONS (19)
  - Pneumonia [Unknown]
  - Shock [Unknown]
  - Insomnia [Unknown]
  - Mental disorder [Unknown]
  - Post-traumatic stress disorder [Unknown]
  - Depression [Unknown]
  - Eye disorder [Unknown]
  - Hallucination [Unknown]
  - Hangover [Unknown]
  - Hypoxia [Unknown]
  - Speech disorder [Unknown]
  - Anxiety [Unknown]
  - Diplopia [Unknown]
  - Adverse event [Unknown]
  - Fatigue [Unknown]
  - Somnolence [Unknown]
  - Dyspnoea [Unknown]
  - Off label use [Unknown]
  - Drug dose omission [Unknown]
